FAERS Safety Report 6432569-X (Version None)
Quarter: 2009Q4

REPORT INFORMATION
  Report Type: 
  Country: None (occurrence: None)
  Receive Date: 20091109
  Receipt Date: 20091028
  Transmission Date: 20100525
  Serious: No
  Sender: FDA-Public Use
  Company Number: DE-ROCHE-664253

PATIENT
  Sex: Male

DRUGS (6)
  1. CELLCEPT [Suspect]
     Dosage: DOSAGE: 2 X 500 MG
     Route: 048
     Dates: start: 20090929, end: 20091008
  2. ASPIRIN [Concomitant]
     Dosage: INIDICATION: AVK
     Route: 048
     Dates: start: 20080619
  3. SANDIMMUNE [Concomitant]
     Route: 048
     Dates: start: 20000515
  4. PREDNISOLONE [Concomitant]
     Route: 048
     Dates: start: 20000515
  5. ENALAPRIL [Concomitant]
     Route: 048
     Dates: start: 20000515
  6. LERCANIDIPIN [Concomitant]
     Route: 048
     Dates: start: 20050802

REACTIONS (1)
  - RHEUMATOID ARTHRITIS [None]
